FAERS Safety Report 18633901 (Version 1)
Quarter: 2020Q4

REPORT INFORMATION
  Report Type: Spontaneous
  Country: US (occurrence: US)
  Receive Date: 20201218
  Receipt Date: 20201218
  Transmission Date: 20210114
  Serious: Yes (Hospitalization)
  Sender: FDA-Public Use
  Company Number: None

PATIENT
  Age: 27 Year
  Sex: Female

DRUGS (15)
  1. HYDROCO/APAP [Concomitant]
     Active Substance: ACETAMINOPHEN\HYDROCODONE
  2. MEMANTNE [Concomitant]
  3. AFINITOR [Suspect]
     Active Substance: EVEROLIMUS
     Route: 048
  4. GABAPENTIN. [Concomitant]
     Active Substance: GABAPENTIN
  5. LEVETIRACETA [Concomitant]
     Active Substance: LEVETIRACETAM
  6. MORPHINE SUL [Concomitant]
     Active Substance: MORPHINE SULFATE
  7. NORTRIPTYLIN [Concomitant]
     Active Substance: NORTRIPTYLINE
  8. ACETAZOLAMID [Concomitant]
     Active Substance: ACETAZOLAMIDE
  9. ADVAIR HFA [Concomitant]
     Active Substance: FLUTICASONE PROPIONATE\SALMETEROL XINAFOATE
  10. MONTELUST [Concomitant]
  11. DEXAMETHASON [Concomitant]
     Active Substance: DEXAMETHASONE
  12. PANTOPRAZOLE [Concomitant]
     Active Substance: PANTOPRAZOLE
  13. METHADONE [Concomitant]
     Active Substance: METHADONE HYDROCHLORIDE
  14. FUROSEMIDE. [Concomitant]
     Active Substance: FUROSEMIDE
  15. METOPROL TAR [Concomitant]

REACTIONS (1)
  - Coma [None]

NARRATIVE: CASE EVENT DATE: 20201215
